FAERS Safety Report 6288471-X (Version None)
Quarter: 2009Q3

REPORT INFORMATION
  Report Type: 
  Country: None (occurrence: None)
  Receive Date: 20090729
  Receipt Date: 20090723
  Transmission Date: 20100115
  Serious: Yes (Hospitalization)
  Sender: FDA-Public Use
  Company Number: B0586137A

PATIENT
  Sex: Male

DRUGS (2)
  1. AVODART [Suspect]
     Indication: DRUG USE FOR UNKNOWN INDICATION
     Dosage: .5MG PER DAY
     Route: 048
     Dates: start: 20081119
  2. TAMSULOSINE [Concomitant]
     Dosage: .4MG PER DAY
     Route: 048
     Dates: start: 20081119

REACTIONS (2)
  - DIZZINESS [None]
  - GYNAECOMASTIA [None]
